FAERS Safety Report 8988852 (Version 2)
Quarter: 2013Q1

REPORT INFORMATION
  Report Type: Spontaneous
  Country: US (occurrence: US)
  Receive Date: 20121228
  Receipt Date: 20130123
  Transmission Date: 20140127
  Serious: Yes (Other)
  Sender: FDA-Public Use
  Company Number: PHEH2012US025354

PATIENT
  Age: 75 Year
  Sex: Female
  Weight: 33.5 kg

DRUGS (6)
  1. FEMARA [Suspect]
     Indication: BREAST CANCER
     Dosage: 2.5 MG, QD
     Route: 048
     Dates: start: 20091013
  2. CAPECITABINE [Concomitant]
     Dosage: UNK UKN, BID
     Dates: start: 20100315, end: 20101226
  3. ANASTROZOLE [Concomitant]
  4. LETROZOLE [Concomitant]
     Dosage: UNK UKN, UNK
     Dates: start: 20091213, end: 20100311
  5. TAMOXIFEN [Concomitant]
     Indication: BREAST CANCER
     Dosage: 20 MG, QD
     Dates: start: 20111123, end: 20121206
  6. DENOSUMAB [Concomitant]
     Indication: BONE CANCER
     Dosage: UNK UKN, QMO
     Route: 058
     Dates: start: 20111122

REACTIONS (8)
  - Anaemia [Recovered/Resolved]
  - Metastases to bone [Unknown]
  - Malignant neoplasm progression [Unknown]
  - Metastases to liver [Unknown]
  - Therapeutic response decreased [Unknown]
  - Fatigue [Unknown]
  - Asthenia [Unknown]
  - Decreased appetite [Unknown]
